FAERS Safety Report 16413687 (Version 2)
Quarter: 2020Q1

REPORT INFORMATION
  Report Type: Spontaneous
  Country: US (occurrence: US)
  Receive Date: 20190611
  Receipt Date: 20200325
  Transmission Date: 20200409
  Serious: Yes (Life-Threatening, Hospitalization, Other)
  Sender: FDA-Public Use
  Company Number: US-GLAXOSMITHKLINE-US2019GSK103072

PATIENT
  Age: 12 Year
  Sex: Male

DRUGS (2)
  1. LISDEXAMFETAMINE [Concomitant]
     Active Substance: LISDEXAMFETAMINE
     Indication: PRODUCT USED FOR UNKNOWN INDICATION
  2. BUPROPION. [Suspect]
     Active Substance: BUPROPION
     Indication: PRODUCT USED FOR UNKNOWN INDICATION
     Dosage: UNK

REACTIONS (16)
  - Seizure [Unknown]
  - Electrocardiogram QRS complex abnormal [Recovering/Resolving]
  - Hypotension [Recovering/Resolving]
  - Drug level above therapeutic [Unknown]
  - Overdose [Unknown]
  - Bradycardia [Recovering/Resolving]
  - Cardiac arrest [Recovering/Resolving]
  - Cardiogenic shock [Recovering/Resolving]
  - Toxicity to various agents [Recovering/Resolving]
  - Torsade de pointes [Recovering/Resolving]
  - Electrocardiogram QT interval abnormal [Recovering/Resolving]
  - Blood lactic acid increased [Recovering/Resolving]
  - Cardiotoxicity [Unknown]
  - Exposure via ingestion [Unknown]
  - Tachycardia [Recovering/Resolving]
  - Tachyarrhythmia [Recovering/Resolving]
